FAERS Safety Report 13887140 (Version 7)
Quarter: 2018Q4

REPORT INFORMATION
  Report Type: Report from Study
  Country: US (occurrence: US)
  Receive Date: 20170821
  Receipt Date: 20181030
  Transmission Date: 20190204
  Serious: Yes (Other)
  Sender: FDA-Public Use
  Company Number: PHHY2017US120688

PATIENT
  Age: 56 Year
  Sex: Female

DRUGS (1)
  1. GILENYA [Suspect]
     Active Substance: FINGOLIMOD HYDROCHLORIDE
     Indication: MULTIPLE SCLEROSIS
     Dosage: UNK, QD
     Route: 048

REACTIONS (11)
  - Constipation [Recovered/Resolved]
  - Rash pruritic [Recovered/Resolved]
  - Upper respiratory tract infection [Recovered/Resolved]
  - Rash macular [Recovered/Resolved]
  - Bowel movement irregularity [Recovered/Resolved]
  - Lymphocyte count decreased [Unknown]
  - Haematochezia [Recovered/Resolved]
  - Nausea [Unknown]
  - Migraine [Recovered/Resolved]
  - Oedema peripheral [Unknown]
  - Rash [Recovered/Resolved]

NARRATIVE: CASE EVENT DATE: 20170620
